FAERS Safety Report 4572417-6 (Version None)
Quarter: 2005Q1

REPORT INFORMATION
  Report Type: 
  Country: None (occurrence: None)
  Receive Date: 20050207
  Receipt Date: 20041216
  Transmission Date: 20050727
  Serious: Yes (Other)
  Sender: FDA-Public Use
  Company Number: NL-GLAXOSMITHKLINE-B0362685A

PATIENT
  Age: 60 Year
  Sex: Female
  Weight: 60 kg

DRUGS (4)
  1. PAROXETINE HYDROCHLORIDE [Suspect]
     Indication: DEPRESSION
     Dosage: 20MG PER DAY
     Route: 065
     Dates: start: 20040106, end: 20040121
  2. PAROXETINE HYDROCHLORIDE [Suspect]
     Dosage: 20MG PER DAY
     Route: 065
     Dates: start: 20000509, end: 20000818
  3. OXAZEPAM [Concomitant]
     Route: 065
  4. TEMAZEPAM [Concomitant]
     Dosage: 20MG UNKNOWN
     Route: 065
     Dates: start: 20000509

REACTIONS (17)
  - ABDOMINAL PAIN [None]
  - ANOREXIA [None]
  - CRYING [None]
  - DEPRESSION [None]
  - DIARRHOEA [None]
  - DYSPHONIA [None]
  - DYSSTASIA [None]
  - EUPHORIC MOOD [None]
  - FATIGUE [None]
  - GASTRIC ULCER HAEMORRHAGE [None]
  - GASTROINTESTINAL DISORDER [None]
  - MANIA [None]
  - MEMORY IMPAIRMENT [None]
  - MOTOR DYSFUNCTION [None]
  - MUSCULAR WEAKNESS [None]
  - SLEEP DISORDER [None]
  - TREMOR [None]
